FAERS Safety Report 6008048-0 (Version None)
Quarter: 2008Q4

REPORT INFORMATION
  Report Type: 
  Country: None (occurrence: None)
  Receive Date: 20081217
  Receipt Date: 20080819
  Transmission Date: 20090506
  Serious: No
  Sender: FDA-Public Use
  Company Number: US-ASTRAZENECA-2008UW16171

PATIENT
  Age: 81 Year
  Sex: Female
  Weight: 59 kg

DRUGS (6)
  1. CRESTOR [Suspect]
     Indication: HYPERCHOLESTEROLAEMIA
     Route: 048
     Dates: start: 20080401, end: 20080701
  2. LOTREL [Concomitant]
  3. CALCIUM [Concomitant]
  4. FOSAMAX [Concomitant]
  5. ASPIRIN [Concomitant]
  6. TEMAZEPAM [Concomitant]

REACTIONS (2)
  - BONE PAIN [None]
  - MYALGIA [None]
